FAERS Safety Report 10284956 (Version 5)
Quarter: 2015Q1

REPORT INFORMATION
  Report Type: Report from Study
  Country: ES (occurrence: ES)
  Receive Date: 20140708
  Receipt Date: 20150212
  Transmission Date: 20150720
  Serious: Yes (Hospitalization, Other)
  Sender: FDA-Public Use
  Company Number: ES-GLAXOSMITHKLINE-B0964352B

PATIENT
  Sex: Male

DRUGS (3)
  1. DABRAFENIB [Suspect]
     Active Substance: DABRAFENIB
     Indication: METASTATIC MALIGNANT MELANOMA
     Dosage: 150 MG BD FROM 04 DEC 2013 TO 21 JAN 2014.100 MG BD FROM 22 JAN 2013.CURRENT DOSE 75 MG BID
     Route: 048
     Dates: start: 20131204
  2. DABRAFENIB [Suspect]
     Active Substance: DABRAFENIB
     Dosage: 75 MG, UNK
     Dates: start: 20140710
  3. TRAMETINIB [Suspect]
     Active Substance: TRAMETINIB
     Indication: METASTATIC MALIGNANT MELANOMA
     Dosage: 2 MG OD FROM 04 DEC 2013 TO 21 JAN 2014.     1.5 MG OD FROM 22 JAN 2014.CURRENT DOSE 1 MG
     Route: 048
     Dates: start: 20131204

REACTIONS (3)
  - Cellulitis [Recovered/Resolved]
  - Pyrexia [Recovered/Resolved]
  - Mastitis [Recovered/Resolved]

NARRATIVE: CASE EVENT DATE: 20140628
